FAERS Safety Report 7499436-4 (Version None)
Quarter: 2011Q2

REPORT INFORMATION
  Report Type: 
  Country: None (occurrence: None)
  Receive Date: 20110524
  Receipt Date: 20110510
  Transmission Date: 20111010
  Serious: Yes (Hospitalization)
  Sender: FDA-Public Use
  Company Number: PHHY2011DE39814

PATIENT
  Sex: Female
  Weight: 60 kg

DRUGS (1)
  1. SANDOSTATIN LAR [Suspect]

REACTIONS (2)
  - DIZZINESS [None]
  - GAIT DISTURBANCE [None]
